FAERS Safety Report 6368406-1 (Version None)
Quarter: 2009Q3

REPORT INFORMATION
  Report Type: 
  Country: None (occurrence: None)
  Receive Date: 20090922
  Receipt Date: 20090917
  Transmission Date: 20100115
  Serious: Yes (Hospitalization)
  Sender: FDA-Public Use
  Company Number: JP-B.I. PHARMACEUTICALS,INC./RIDGEFIELD-2009-BP-09776NB

PATIENT
  Sex: Female
  Weight: 67.6 kg

DRUGS (4)
  1. MICARDIS [Suspect]
     Indication: HYPERTENSION
     Dosage: 20 MG
     Route: 048
     Dates: start: 20060930, end: 20070608
  2. MICARDIS [Suspect]
     Dosage: 40 MG
     Route: 048
     Dates: start: 20070609, end: 20080202
  3. MOBIC [Suspect]
     Indication: BACK PAIN
     Dosage: 5 MG
     Route: 048
     Dates: start: 20060317
  4. WARFARIN SODIUM [Concomitant]
     Dates: end: 20080201

REACTIONS (2)
  - GASTRIC ULCER [None]
  - HUMERUS FRACTURE [None]
